FAERS Safety Report 7808398-9 (Version None)
Quarter: 2011Q4

REPORT INFORMATION
  Report Type: 
  Country: None (occurrence: None)
  Receive Date: 20111007
  Receipt Date: 20110922
  Transmission Date: 20120403
  Serious: Yes (Other)
  Sender: FDA-Public Use
  Company Number: 2011PV000053

PATIENT
  Sex: Male

DRUGS (1)
  1. DEPOCYT [Suspect]
     Dosage: INTH
     Route: 039

REACTIONS (2)
  - DEAFNESS [None]
  - INNER EAR DISORDER [None]
